FAERS Safety Report 18036027 (Version 2)
Quarter: 2021Q1

REPORT INFORMATION
  Report Type: Spontaneous
  Country: US (occurrence: US)
  Receive Date: 20200717
  Receipt Date: 20210312
  Transmission Date: 20210419
  Serious: Yes (Other)
  Sender: FDA-Public Use
  Company Number: US-ASTRAZENECA-2020SE88941

PATIENT
  Age: 29397 Day
  Sex: Female
  Weight: 86.2 kg

DRUGS (1)
  1. BYDUREON BCISE [Suspect]
     Active Substance: EXENATIDE
     Indication: TYPE 2 DIABETES MELLITUS
     Route: 058
     Dates: start: 20190621

REACTIONS (4)
  - Injection site bruising [Unknown]
  - Incorrect dose administered by device [Unknown]
  - Device leakage [Unknown]
  - Breast cancer female [Unknown]

NARRATIVE: CASE EVENT DATE: 20200710
